FAERS Safety Report 9134687 (Version 1)
Quarter: 2013Q1

REPORT INFORMATION
  Report Type: Spontaneous
  Country: US (occurrence: US)
  Receive Date: 20130304
  Receipt Date: 20130304
  Transmission Date: 20140127
  Serious: No
  Sender: FDA-Public Use
  Company Number: US-ENDO PHARMACEUTICALS INC.-VALS20120045

PATIENT
  Age: 9 Decade
  Sex: Male

DRUGS (3)
  1. VALSTAR [Suspect]
     Indication: PRODUCT USED FOR UNKNOWN INDICATION
     Dosage: UNK
     Route: 043
     Dates: start: 20120712, end: 20120712
  2. VALSTAR [Suspect]
     Route: 043
     Dates: start: 201207, end: 201207
  3. VALSTAR [Suspect]
     Dosage: UNK
     Route: 043
     Dates: start: 20120719, end: 20120719

REACTIONS (2)
  - Melaena [Unknown]
  - Frequent bowel movements [Unknown]
